FAERS Safety Report 6041493-6 (Version None)
Quarter: 2009Q1

REPORT INFORMATION
  Report Type: 
  Country: None (occurrence: None)
  Receive Date: 20090116
  Receipt Date: 20090108
  Transmission Date: 20090719
  Serious: Yes (Other)
  Sender: FDA-Public Use
  Company Number: DE-ELI_LILLY_AND_COMPANY-DE_050916945

PATIENT
  Sex: Female
  Weight: 79.8 kg

DRUGS (8)
  1. FLUCTIN [Suspect]
     Indication: PAIN
     Dosage: 20 MG, DAILY (1/D)
     Dates: start: 19990101
  2. FLUCTIN [Suspect]
     Dosage: 20 MG, 2/D
     Route: 048
     Dates: end: 20050827
  3. FLUOXETIN ^STADA^ [Concomitant]
     Route: 048
     Dates: start: 20050828, end: 20050912
  4. IBUPROFEN [Concomitant]
     Dosage: UNK, UNKNOWN
  5. JODID [Concomitant]
  6. VITAMIN A [Concomitant]
     Dosage: UNK, UNKNOWN
  7. NERVOREGIN [Concomitant]
     Dosage: UNK, 3/W
  8. ANTIDEPRESSANTS [Concomitant]

REACTIONS (20)
  - ALLERGIC GRANULOMATOUS ANGIITIS [None]
  - ALVEOLITIS [None]
  - APATHY [None]
  - ASTHMA [None]
  - BLOOD PRESSURE FLUCTUATION [None]
  - BLOOD PROLACTIN INCREASED [None]
  - BRONCHITIS CHRONIC [None]
  - CARPAL TUNNEL SYNDROME [None]
  - CERVICOBRACHIAL SYNDROME [None]
  - CORONARY ARTERY DISEASE [None]
  - ECZEMA [None]
  - ELECTROCARDIOGRAM ABNORMAL [None]
  - EPICONDYLITIS [None]
  - HYPEREOSINOPHILIC SYNDROME [None]
  - INTERSTITIAL LUNG DISEASE [None]
  - OBESITY [None]
  - OEDEMA MUCOSAL [None]
  - PULMONARY FIBROSIS [None]
  - RESPIRATORY DEPRESSION [None]
  - SLEEP DISORDER [None]
